FAERS Safety Report 5145773-8 (Version None)
Quarter: 2006Q4

REPORT INFORMATION
  Report Type: 
  Country: None (occurrence: None)
  Receive Date: 20061107
  Receipt Date: 20060807
  Transmission Date: 20070319
  Serious: Yes (Disabling, Other)
  Sender: FDA-Public Use
  Company Number: JP-ABBOTT-06P-087-0339691-00

PATIENT
  Sex: Male

DRUGS (6)
  1. CEFZON [Suspect]
     Indication: NASOPHARYNGITIS
     Route: 048
     Dates: start: 20060624
  2. CEFZON [Suspect]
     Indication: BRONCHITIS ACUTE
  3. CEFZON [Suspect]
     Indication: UPPER RESPIRATORY TRACT INFLAMMATION
  4. BRUFEN TABLETS [Suspect]
     Indication: UPPER RESPIRATORY TRACT INFLAMMATION
     Route: 048
     Dates: start: 20060624
  5. CELESTONE [Suspect]
     Indication: RHINITIS ALLERGIC
     Route: 048
     Dates: start: 20060624
  6. DIPYRONE TAB [Suspect]
     Indication: UPPER RESPIRATORY TRACT INFLAMMATION
     Route: 030
     Dates: start: 20060624

REACTIONS (3)
  - CONFUSIONAL STATE [None]
  - RESTLESSNESS [None]
  - SPINAL COMPRESSION FRACTURE [None]
